FAERS Safety Report 8227588-7 (Version None)
Quarter: 2012Q1

REPORT INFORMATION
  Report Type: 
  Country: None (occurrence: None)
  Receive Date: 20120307
  Receipt Date: 20100430
  Transmission Date: 20120608
  Serious: Yes (Other)
  Sender: FDA-Public Use
  Company Number: PHEH2009US15952

PATIENT
  Age: 67 Year
  Sex: Female
  Weight: 67.6 kg

DRUGS (4)
  1. AFINITOR [Suspect]
     Indication: RENAL CELL CARCINOMA
     Dosage: 10 MG, QD, ORAL
     Route: 048
     Dates: start: 20090701, end: 20091124
  2. CYMBALTA [Concomitant]
  3. NEXIUM [Concomitant]
  4. ACETAMINOPHEN [Concomitant]

REACTIONS (12)
  - PULMONARY TOXICITY [None]
  - VITAL CAPACITY DECREASED [None]
  - COUGH [None]
  - INTERSTITIAL LUNG DISEASE [None]
  - PYREXIA [None]
  - LUNG CONSOLIDATION [None]
  - MALAISE [None]
  - CARBON MONOXIDE DIFFUSING CAPACITY DECREASED [None]
  - DYSPNOEA [None]
  - FATIGUE [None]
  - PNEUMONIA PRIMARY ATYPICAL [None]
  - BRONCHOALVEOLAR LAVAGE [None]
